FAERS Safety Report 9776935 (Version 1)
Quarter: 2013Q4

REPORT INFORMATION
  Report Type: Spontaneous
  Country: US (occurrence: US)
  Receive Date: 20131221
  Receipt Date: 20131221
  Transmission Date: 20140711
  Serious: No
  Sender: FDA-Public Use
  Company Number: 2013SP003772

PATIENT
  Sex: 0

DRUGS (3)
  1. VANCOMYCIN [Suspect]
     Indication: CELLULITIS
     Route: 064
  2. ZOSYN [Concomitant]
  3. CLINDAMYCIN [Concomitant]

REACTIONS (1)
  - Maternal exposure during pregnancy [Unknown]
